FAERS Safety Report 25254338 (Version 5)
Quarter: 2025Q3

REPORT INFORMATION
  Report Type: Spontaneous
  Country: EU (occurrence: EU)
  Receive Date: 20250430
  Receipt Date: 20250720
  Transmission Date: 20251020
  Serious: Yes (Hospitalization, Other)
  Sender: AUROBINDO
  Company Number: EU-Gedeon Richter Plc.-2024_GR_002127

PATIENT
  Age: 75 Year
  Sex: Male

DRUGS (12)
  1. GABAPENTIN [Suspect]
     Active Substance: GABAPENTIN
     Indication: Diabetic neuropathy
     Route: 065
  2. GABAPENTIN [Suspect]
     Active Substance: GABAPENTIN
     Indication: Neuralgia
     Dosage: 1200 MILLIGRAM, ONCE A DAY (GABAPENTIN 300 MG WITH GRADUAL TITRATION TO A DOSE OF 1,200 MG/DAY)
     Route: 065
  3. GABAPENTIN [Suspect]
     Active Substance: GABAPENTIN
     Indication: Spinal pain
  4. PREGABALIN [Suspect]
     Active Substance: PREGABALIN
     Indication: Diabetic neuropathy
     Route: 065
  5. PREGABALIN [Suspect]
     Active Substance: PREGABALIN
     Indication: Neuralgia
     Dosage: 75 MILLIGRAM, ONCE A DAY
     Route: 065
  6. PREGABALIN [Suspect]
     Active Substance: PREGABALIN
     Indication: Spinal pain
  7. PREGABALIN [Suspect]
     Active Substance: PREGABALIN
     Indication: Analgesic therapy
  8. NALOXONE HYDROCHLORIDE\OXYCODONE HYDROCHLORIDE [Suspect]
     Active Substance: NALOXONE HYDROCHLORIDE\OXYCODONE HYDROCHLORIDE
     Indication: Spinal pain
     Dosage: UNK, ONCE A DAY
     Route: 065
  9. NALOXONE HYDROCHLORIDE\OXYCODONE HYDROCHLORIDE [Suspect]
     Active Substance: NALOXONE HYDROCHLORIDE\OXYCODONE HYDROCHLORIDE
     Indication: Analgesic therapy
  10. METAMIZOLE [Suspect]
     Active Substance: METAMIZOLE
     Indication: Pain
     Route: 065
  11. CANNABIS SATIVA SUBSP. INDICA TOP [Concomitant]
     Active Substance: CANNABIS SATIVA SUBSP. INDICA TOP
     Indication: Paraesthesia
     Dosage: 0.6 GRAM, ONCE A DAY (0.0625 G PER CAPSULE AT NIGHT)
     Route: 065
     Dates: start: 202310
  12. CANNABIS SATIVA SUBSP. INDICA TOP [Concomitant]
     Active Substance: CANNABIS SATIVA SUBSP. INDICA TOP
     Indication: Hyperaesthesia

REACTIONS (8)
  - Paraparesis [Unknown]
  - Drug ineffective for unapproved indication [Unknown]
  - Oedema peripheral [Unknown]
  - Peripheral swelling [Recovered/Resolved]
  - Muscle spasms [Recovered/Resolved]
  - Therapeutic product effect decreased [Unknown]
  - Neuralgia [Recovered/Resolved]
  - Drug ineffective [Unknown]

NARRATIVE: CASE EVENT DATE: 20190101
